FAERS Safety Report 14425392 (Version 1)
Quarter: 2018Q1

REPORT INFORMATION
  Report Type: Spontaneous
  Country: US (occurrence: US)
  Receive Date: 20180122
  Receipt Date: 20180122
  Transmission Date: 20180509
  Serious: No
  Sender: FDA-Public Use
  Company Number: None

PATIENT
  Age: 70 Year
  Sex: Female

DRUGS (1)
  1. JAKAFI [Suspect]
     Active Substance: RUXOLITINIB
     Route: 048

REACTIONS (7)
  - Feeling cold [None]
  - Headache [None]
  - Drug ineffective [None]
  - Gait disturbance [None]
  - Oedema peripheral [None]
  - Tinnitus [None]
  - Asthenia [None]

NARRATIVE: CASE EVENT DATE: 20180117
